FAERS Safety Report 4397915-X (Version None)
Quarter: 2004Q3

REPORT INFORMATION
  Report Type: 
  Country: None (occurrence: None)
  Receive Date: 20040714
  Receipt Date: 20040712
  Transmission Date: 20050211
  Serious: Yes (Disabling)
  Sender: FDA-Public Use
  Company Number: NO-MERCK-0407NOR00041

PATIENT
  Age: 37 Year
  Sex: Female

DRUGS (2)
  1. ACETAMINOPHEN AND CODEINE [Concomitant]
     Route: 065
  2. VIOXX [Suspect]
     Indication: NECK PAIN
     Route: 048
     Dates: start: 20040604, end: 20040617

REACTIONS (4)
  - ABDOMINAL PAIN UPPER [None]
  - ASTHENIA [None]
  - DIARRHOEA [None]
  - SYNCOPE [None]
